FAERS Safety Report 12589116 (Version 3)
Quarter: 2017Q1

REPORT INFORMATION
  Report Type: Report from Study
  Country: US (occurrence: US)
  Receive Date: 20160725
  Receipt Date: 20170124
  Transmission Date: 20170428
  Serious: No
  Sender: FDA-Public Use
  Company Number: US-AMGEN-USASL2016086418

PATIENT
  Age: 59 Year
  Sex: Female
  Weight: 71 kg

DRUGS (5)
  1. VITAMIN E [Concomitant]
     Active Substance: .ALPHA.-TOCOPHEROL
     Dosage: 100 UNIT, QD
  2. REPATHA [Suspect]
     Active Substance: EVOLOCUMAB
     Indication: BLOOD CHOLESTEROL INCREASED
     Dosage: 140 MG/ML, Q2WK
     Route: 058
     Dates: start: 20160316
  3. REPATHA [Suspect]
     Active Substance: EVOLOCUMAB
     Indication: HYPERLIPIDAEMIA
  4. VITAMIN D3 [Concomitant]
     Active Substance: CHOLECALCIFEROL
     Dosage: 1000 UNIT, QD
     Dates: start: 20130723
  5. SYNTHROID [Concomitant]
     Active Substance: LEVOTHYROXINE SODIUM
     Dosage: 100 MUG, Q6DAYS/QWK
     Dates: start: 20120607

REACTIONS (10)
  - Dysphonia [Unknown]
  - Pyrexia [Recovered/Resolved]
  - Oral herpes [Recovered/Resolved]
  - Glossodynia [Unknown]
  - Nail disorder [Unknown]
  - Bronchitis [Unknown]
  - Arthritis [Unknown]
  - Hair disorder [Unknown]
  - Fatigue [Recovered/Resolved]
  - Arthralgia [Unknown]
